FAERS Safety Report 7362148-1 (Version None)
Quarter: 2011Q1

REPORT INFORMATION
  Report Type: 
  Country: None (occurrence: None)
  Receive Date: 20110318
  Receipt Date: 20110309
  Transmission Date: 20110831
  Serious: Yes (Hospitalization)
  Sender: FDA-Public Use
  Company Number: JP-MEDIMMUNE-MEDI-0012764

PATIENT
  Sex: Female

DRUGS (4)
  1. FUROSEMIDE [Concomitant]
     Indication: PULMONARY HYPERTENSION
     Route: 048
     Dates: start: 20101224
  2. SYNAGIS [Suspect]
     Indication: RESPIRATORY SYNCYTIAL VIRUS INFECTION
     Route: 030
     Dates: start: 20101224, end: 20110210
  3. SPIRONOLACTONE [Concomitant]
     Indication: PULMONARY HYPERTENSION
     Route: 048
     Dates: start: 20101224
  4. DIGOXIN [Concomitant]
     Indication: CARDIAC FAILURE
     Route: 048
     Dates: start: 20110128

REACTIONS (3)
  - RESPIRATORY SYNCYTIAL VIRUS INFECTION [None]
  - NO THERAPEUTIC RESPONSE [None]
  - RESPIRATORY SYNCYTIAL VIRUS BRONCHIOLITIS [None]
